FAERS Safety Report 25138744 (Version 1)
Quarter: 2025Q1

REPORT INFORMATION
  Report Type: Spontaneous
  Country: US (occurrence: CH)
  Receive Date: 20250330
  Receipt Date: 20250330
  Transmission Date: 20250408
  Serious: Yes (Hospitalization)
  Sender: ALKEM
  Company Number: None

PATIENT
  Age: 49 Year
  Sex: Male

DRUGS (22)
  1. QUETIAPINE FUMARATE [Suspect]
     Active Substance: QUETIAPINE FUMARATE
     Indication: Schizophrenia
     Route: 065
  2. QUETIAPINE FUMARATE [Suspect]
     Active Substance: QUETIAPINE FUMARATE
     Indication: Malignant catatonia
  3. CLOZAPINE [Suspect]
     Active Substance: CLOZAPINE
     Indication: Malignant catatonia
     Route: 065
  4. CLOZAPINE [Suspect]
     Active Substance: CLOZAPINE
     Indication: Schizophrenia
  5. ARIPIPRAZOLE [Concomitant]
     Active Substance: ARIPIPRAZOLE
     Indication: Catatonia
     Route: 065
  6. ARIPIPRAZOLE [Concomitant]
     Active Substance: ARIPIPRAZOLE
     Indication: Schizophrenia
  7. LORAZEPAM [Suspect]
     Active Substance: LORAZEPAM
     Indication: Catatonia
     Dosage: 36 MILLIGRAM, QD
     Route: 065
  8. LORAZEPAM [Suspect]
     Active Substance: LORAZEPAM
     Indication: Schizophrenia
     Dosage: 20 MILLIGRAM, QD
     Route: 065
  9. LORAZEPAM [Suspect]
     Active Substance: LORAZEPAM
     Dosage: 2 MILLIGRAM, QD
     Route: 030
  10. LORAZEPAM [Suspect]
     Active Substance: LORAZEPAM
     Dosage: 1.5 MILLIGRAM, QID
     Route: 065
  11. LORAZEPAM [Suspect]
     Active Substance: LORAZEPAM
     Dosage: 1 MILLIGRAM, TID
     Route: 065
  12. AMANTADINE [Concomitant]
     Active Substance: AMANTADINE
     Indication: Schizophrenia
     Route: 065
  13. AMANTADINE [Concomitant]
     Active Substance: AMANTADINE
     Indication: Malignant catatonia
  14. DIAZEPAM [Concomitant]
     Active Substance: DIAZEPAM
     Indication: Status epilepticus
     Dosage: 12.5 MILLIGRAM, QID (EVERY 6 HOUR)
     Route: 042
  15. DIAZEPAM [Concomitant]
     Active Substance: DIAZEPAM
     Route: 042
  16. ENOXAPARIN [Concomitant]
     Active Substance: ENOXAPARIN
     Indication: Deep vein thrombosis
     Route: 065
  17. OLANZAPINE [Concomitant]
     Active Substance: OLANZAPINE
     Indication: Malignant catatonia
     Dosage: UNK, QD (EVERY 1 DAY)
     Route: 065
  18. OLANZAPINE [Concomitant]
     Active Substance: OLANZAPINE
     Indication: Schizophrenia
     Dosage: 20 MILLIGRAM, QD ( EVERY 1 DAY )
     Route: 065
  19. OLANZAPINE [Concomitant]
     Active Substance: OLANZAPINE
     Dosage: 10 MILLIGRAM, QD ( EVERY 1 DAY)
     Route: 065
  20. OLANZAPINE [Concomitant]
     Active Substance: OLANZAPINE
     Dosage: 5 MILLIGRAM, QD (EVERY 1 DAY)
     Route: 065
  21. PROPOFOL [Concomitant]
     Active Substance: PROPOFOL
     Indication: Sedation
     Route: 065
  22. VALPROIC ACID [Concomitant]
     Active Substance: VALPROIC ACID
     Indication: Status epilepticus
     Dosage: 800 MILLIGRAM, TID (EVERY 8 HOUR)
     Route: 042

REACTIONS (2)
  - Neuroleptic malignant syndrome [Unknown]
  - Pyrexia [Unknown]
